FAERS Safety Report 9333391 (Version 1)
Quarter: 2013Q2

REPORT INFORMATION
  Report Type: Spontaneous
  Country: US (occurrence: None)
  Receive Date: 20130604
  Receipt Date: 20130604
  Transmission Date: 20140414
  Serious: Yes (Other)
  Sender: FDA-Public Use
  Company Number: FK201301834

PATIENT
  Age: 79 Year
  Sex: Male

DRUGS (1)
  1. METHOTREXATE (METHOTREXATE) [Suspect]
     Indication: DIFFUSE LARGE B-CELL LYMPHOMA

REACTIONS (6)
  - Renal failure acute [None]
  - Toxicity to various agents [None]
  - Continuous haemodiafiltration [None]
  - Subdural haematoma [None]
  - Leukaemic lymphoma [None]
  - Drug clearance decreased [None]
